FAERS Safety Report 9380345 (Version 1)
Quarter: 2013Q3

REPORT INFORMATION
  Report Type: Spontaneous
  Country: US (occurrence: US)
  Receive Date: 20130702
  Receipt Date: 20130702
  Transmission Date: 20140515
  Serious: Yes (Death)
  Sender: FDA-Public Use
  Company Number: US-GLAXOSMITHKLINE-A1029281A

PATIENT
  Age: 70 Year
  Sex: Female

DRUGS (8)
  1. TYKERB [Suspect]
     Indication: ILL-DEFINED DISORDER
     Dosage: 750MG PER DAY
     Route: 048
     Dates: start: 20130208
  2. XGEVA [Concomitant]
  3. HERCEPTIN [Concomitant]
  4. FEMARA [Concomitant]
  5. LOVENOX [Concomitant]
  6. NADOLOL [Concomitant]
  7. LETROZOLE [Concomitant]
  8. DOXYCYCLINE [Concomitant]

REACTIONS (1)
  - Death [Fatal]
